FAERS Safety Report 22266846 (Version 1)
Quarter: 2023Q2

REPORT INFORMATION
  Report Type: Spontaneous
  Country: US (occurrence: None)
  Receive Date: 20230427
  Receipt Date: 20230427
  Transmission Date: 20230722
  Serious: Yes (Hospitalization)
  Sender: FDA-Public Use
  Company Number: None

PATIENT
  Age: 63 Year
  Sex: Female

DRUGS (1)
  1. CAPECITABINE [Suspect]
     Active Substance: CAPECITABINE
     Dosage: FREQUENCY : TWICE A DAY;?
     Route: 048

REACTIONS (7)
  - Pulmonary oedema [None]
  - Pneumonia [None]
  - Heart rate increased [None]
  - Skin exfoliation [None]
  - Erythema [None]
  - Erythema [None]
  - Off label use [None]

NARRATIVE: CASE EVENT DATE: 20230427
